FAERS Safety Report 16414471 (Version 1)
Quarter: 2019Q3

REPORT INFORMATION
  Report Type: Spontaneous
  Country: US (occurrence: US)
  Receive Date: 20190610
  Receipt Date: 20190610
  Transmission Date: 20191004
  Serious: Yes (Hospitalization)
  Sender: FDA-Public Use
  Company Number: None

PATIENT
  Age: 72 Year
  Sex: Female

DRUGS (8)
  1. SILDENAFIL. [Suspect]
     Active Substance: SILDENAFIL
     Indication: PULMONARY ARTERIAL HYPERTENSION
     Dosage: FREQUENCY: 3 TIMES A DAY
     Route: 048
     Dates: start: 20190608
  2. ADCIRCA [Concomitant]
     Active Substance: TADALAFIL
  3. ASPIRIN. [Concomitant]
     Active Substance: ASPIRIN
  4. ROSUVASTATIN. [Concomitant]
     Active Substance: ROSUVASTATIN
  5. POLYETH GLYC [Concomitant]
     Active Substance: POLYETHYLENE GLYCOLS
  6. BUMETANIDE. [Concomitant]
     Active Substance: BUMETANIDE
  7. GABAPENTIN. [Concomitant]
     Active Substance: GABAPENTIN
  8. PANTOPROZOLE [Concomitant]

REACTIONS (2)
  - Cardiac failure acute [None]
  - Swelling [None]

NARRATIVE: CASE EVENT DATE: 20190521
